FAERS Safety Report 10272760 (Version 1)
Quarter: 2014Q2

REPORT INFORMATION
  Report Type: Spontaneous
  Country: US (occurrence: None)
  Receive Date: 20140630
  Receipt Date: 20140630
  Transmission Date: 20141212
  Serious: Yes (Other)
  Sender: FDA-Public Use
  Company Number: None

PATIENT
  Age: 79 Year
  Sex: Female
  Weight: 47.63 kg

DRUGS (8)
  1. METOPROLOL SUCC ER [Suspect]
     Indication: HYPERTENSION
     Dosage: 25 MG TAB  1 TAB DAILY  DAILY WITH FOOD  BY MOUTH
     Route: 048
     Dates: start: 201404, end: 201406
  2. NIASPAN [Concomitant]
  3. LIPITOR [Concomitant]
  4. VIT C [Concomitant]
  5. VIT E [Concomitant]
  6. CALCIUM + D [Concomitant]
  7. ASPIRIN [Concomitant]
  8. CENTRUM SILVER [Concomitant]

REACTIONS (1)
  - Product physical issue [None]
